FAERS Safety Report 10004109 (Version 1)
Quarter: 2014Q1

REPORT INFORMATION
  Report Type: Spontaneous
  Country: US (occurrence: US)
  Receive Date: 20140312
  Receipt Date: 20140312
  Transmission Date: 20141002
  Serious: Yes (Other)
  Sender: FDA-Public Use
  Company Number: CHPA2014US003681

PATIENT
  Age: 77 Year
  Sex: Female

DRUGS (5)
  1. KERI ORIGINAL [Suspect]
     Indication: SKIN COSMETIC PROCEDURE
     Dosage: UNK
     Route: 061
  2. KERI ORIGINAL [Suspect]
     Indication: OFF LABEL USE
  3. KERI ORIGINAL [Suspect]
     Indication: SKIN DISORDER
  4. KERI ORIGINAL [Suspect]
     Indication: OFF LABEL USE
  5. FORMULA 405 [Concomitant]
     Indication: SKIN DISORDER

REACTIONS (3)
  - Ocular hyperaemia [Recovering/Resolving]
  - Lacrimation increased [Recovering/Resolving]
  - Dry eye [Recovering/Resolving]
